FAERS Safety Report 25162694 (Version 2)
Quarter: 2025Q3

REPORT INFORMATION
  Report Type: Spontaneous
  Country: EU (occurrence: EU)
  Receive Date: 20250404
  Receipt Date: 20250822
  Transmission Date: 20251020
  Serious: Yes (Life-Threatening, Hospitalization)
  Sender: MYLAN
  Company Number: None

PATIENT
  Age: 78 Year
  Sex: Female
  Weight: 56 kg

DRUGS (20)
  1. TAHOR [Suspect]
     Active Substance: ATORVASTATIN CALCIUM
     Indication: Myocardial ischaemia
     Dosage: 80 MILLIGRAM, QD
     Dates: start: 20241216, end: 202503
  2. TAHOR [Suspect]
     Active Substance: ATORVASTATIN CALCIUM
     Dosage: 80 MILLIGRAM, QD
     Route: 048
     Dates: start: 20241216, end: 202503
  3. TAHOR [Suspect]
     Active Substance: ATORVASTATIN CALCIUM
     Dosage: 80 MILLIGRAM, QD
     Route: 048
     Dates: start: 20241216, end: 202503
  4. TAHOR [Suspect]
     Active Substance: ATORVASTATIN CALCIUM
     Dosage: 80 MILLIGRAM, QD
     Dates: start: 20241216, end: 202503
  5. KARDEGIC [Suspect]
     Active Substance: ASPIRIN DL-LYSINE
     Indication: Myocardial ischaemia
     Dosage: 75 MILLIGRAM, QD (POWDER FOR ORAL SOLUTION IN SACHET DOSE)
     Dates: start: 20241216, end: 20250311
  6. KARDEGIC [Suspect]
     Active Substance: ASPIRIN DL-LYSINE
     Dosage: 75 MILLIGRAM, QD (POWDER FOR ORAL SOLUTION IN SACHET DOSE)
     Route: 048
     Dates: start: 20241216, end: 20250311
  7. KARDEGIC [Suspect]
     Active Substance: ASPIRIN DL-LYSINE
     Dosage: 75 MILLIGRAM, QD (POWDER FOR ORAL SOLUTION IN SACHET DOSE)
     Route: 048
     Dates: start: 20241216, end: 20250311
  8. KARDEGIC [Suspect]
     Active Substance: ASPIRIN DL-LYSINE
     Dosage: 75 MILLIGRAM, QD (POWDER FOR ORAL SOLUTION IN SACHET DOSE)
     Dates: start: 20241216, end: 20250311
  9. TICAGRELOR [Concomitant]
     Active Substance: TICAGRELOR
     Indication: Myocardial ischaemia
     Dosage: 90 MILLIGRAM, BID (180 MG, QD)
     Dates: start: 20241216, end: 20250317
  10. TICAGRELOR [Concomitant]
     Active Substance: TICAGRELOR
     Dosage: 90 MILLIGRAM, BID (180 MG, QD)
     Route: 048
     Dates: start: 20241216, end: 20250317
  11. TICAGRELOR [Concomitant]
     Active Substance: TICAGRELOR
     Dosage: 90 MILLIGRAM, BID (180 MG, QD)
     Route: 048
     Dates: start: 20241216, end: 20250317
  12. TICAGRELOR [Concomitant]
     Active Substance: TICAGRELOR
     Dosage: 90 MILLIGRAM, BID (180 MG, QD)
     Dates: start: 20241216, end: 20250317
  13. BISOPROLOL [Concomitant]
     Active Substance: BISOPROLOL
     Indication: Myocardial ischaemia
     Dosage: 2.5 MILLIGRAM, QD
     Dates: start: 20241216
  14. BISOPROLOL [Concomitant]
     Active Substance: BISOPROLOL
     Dosage: 2.5 MILLIGRAM, QD
     Route: 048
     Dates: start: 20241216
  15. BISOPROLOL [Concomitant]
     Active Substance: BISOPROLOL
     Dosage: 2.5 MILLIGRAM, QD
     Route: 048
     Dates: start: 20241216
  16. BISOPROLOL [Concomitant]
     Active Substance: BISOPROLOL
     Dosage: 2.5 MILLIGRAM, QD
     Dates: start: 20241216
  17. CETIRIZINE [Concomitant]
     Active Substance: CETIRIZINE HYDROCHLORIDE
     Indication: Product used for unknown indication
  18. CETIRIZINE [Concomitant]
     Active Substance: CETIRIZINE HYDROCHLORIDE
     Route: 048
  19. CETIRIZINE [Concomitant]
     Active Substance: CETIRIZINE HYDROCHLORIDE
     Route: 048
  20. CETIRIZINE [Concomitant]
     Active Substance: CETIRIZINE HYDROCHLORIDE

REACTIONS (4)
  - Agranulocytosis [Recovered/Resolved]
  - Cholestatic liver injury [Not Recovered/Not Resolved]
  - Mixed liver injury [Recovered/Resolved]
  - Rhabdomyolysis [Recovering/Resolving]

NARRATIVE: CASE EVENT DATE: 20250201
